FAERS Safety Report 14730413 (Version 1)
Quarter: 2018Q2

REPORT INFORMATION
  Report Type: Spontaneous
  Country: US (occurrence: US)
  Receive Date: 20180406
  Receipt Date: 20180406
  Transmission Date: 20180711
  Serious: No
  Sender: FDA-Public Use
  Company Number: US-TEVA-2018-US-876771

PATIENT
  Sex: Female

DRUGS (1)
  1. NECON [Suspect]
     Active Substance: ETHINYL ESTRADIOL\NORETHINDRONE
     Indication: ENDOMETRIOSIS
     Dosage: 1/50 1+50MCG
     Route: 065

REACTIONS (1)
  - Product use in unapproved indication [Unknown]
